FAERS Safety Report 7250552-1 (Version None)
Quarter: 2011Q1

REPORT INFORMATION
  Report Type: 
  Country: None (occurrence: None)
  Receive Date: 20110128
  Receipt Date: 20110124
  Transmission Date: 20110831
  Serious: Yes (Death)
  Sender: FDA-Public Use
  Company Number: PHHO2011ES01855

PATIENT
  Sex: Male

DRUGS (4)
  1. PREDNISONE [Suspect]
     Indication: RENAL TRANSPLANT
     Dosage: UNK
     Dates: start: 20061009
  2. MYCOPHENOLATE MOFETIL [Suspect]
     Indication: RENAL TRANSPLANT
     Dosage: UNK
     Dates: start: 20061005
  3. CYCLOSPORINE [Suspect]
     Indication: RENAL TRANSPLANT
     Dosage: 75 MG, QD
     Route: 048
     Dates: start: 20100610
  4. BASILIXIMAB [Concomitant]
     Dosage: UNK
     Dates: start: 20061005

REACTIONS (5)
  - PYREXIA [None]
  - GENERAL PHYSICAL HEALTH DETERIORATION [None]
  - PNEUMONIA [None]
  - DYSPNOEA [None]
  - CARDIO-RESPIRATORY ARREST [None]
